FAERS Safety Report 18866620 (Version 1)
Quarter: 2021Q1

REPORT INFORMATION
  Report Type: Spontaneous
  Country: US (occurrence: US)
  Receive Date: 20210208
  Receipt Date: 20210208
  Transmission Date: 20210420
  Serious: Yes (Hospitalization)
  Sender: FDA-Public Use
  Company Number: None

PATIENT
  Sex: Female

DRUGS (25)
  1. SINGULAIR [Concomitant]
     Active Substance: MONTELUKAST SODIUM
  2. CYMBALTA [Concomitant]
     Active Substance: DULOXETINE HYDROCHLORIDE
  3. FOVENT HFA [Concomitant]
  4. LIPITOR [Concomitant]
     Active Substance: ATORVASTATIN CALCIUM
  5. POTASSIUM GL ER [Concomitant]
  6. TIZANIDINE. [Concomitant]
     Active Substance: TIZANIDINE
  7. GLATIRAMER 40MG/ML SYR [Suspect]
     Active Substance: GLATIRAMER
     Indication: MULTIPLE SCLEROSIS
     Route: 058
     Dates: start: 20201004, end: 20210204
  8. CLONIDINE. [Concomitant]
     Active Substance: CLONIDINE
  9. KEFLEX [Concomitant]
     Active Substance: CEPHALEXIN
  10. ONDANSETRON [Concomitant]
     Active Substance: ONDANSETRON
  11. PROCHLORPER [Concomitant]
  12. ACYCLOVIR. [Concomitant]
     Active Substance: ACYCLOVIR
  13. AIMOVIG [Concomitant]
     Active Substance: ERENUMAB-AOOE
  14. BUPRENORPHIN DIS [Concomitant]
  15. HYDROCHLOROT [Concomitant]
     Active Substance: HYDROCHLOROTHIAZIDE
  16. HYDROXYZ HCL [Concomitant]
     Active Substance: HYDROXYZINE HYDROCHLORIDE
  17. OMEPRAZOLE. [Concomitant]
     Active Substance: OMEPRAZOLE
  18. DEPO?PROVERA [Concomitant]
     Active Substance: MEDROXYPROGESTERONE ACETATE
  19. FLUOCINONIDE. [Concomitant]
     Active Substance: FLUOCINONIDE
  20. MINOCYCLINE [Concomitant]
     Active Substance: MINOCYCLINE HYDROCHLORIDE
  21. ALBUTEROL AER [Concomitant]
     Active Substance: ALBUTEROL
  22. VASCEPA [Concomitant]
     Active Substance: ICOSAPENT ETHYL
  23. PREGABALIN. [Concomitant]
     Active Substance: PREGABALIN
  24. FIORICET [Concomitant]
     Active Substance: ACETAMINOPHEN\BUTALBITAL\CAFFEINE
  25. OXCARBAZEPIN [Concomitant]
     Active Substance: OXCARBAZEPINE

REACTIONS (5)
  - Headache [None]
  - Pain [None]
  - Swelling [None]
  - Nausea [None]
  - Cognitive disorder [None]
